FAERS Safety Report 11231399 (Version 2)
Quarter: 2015Q4

REPORT INFORMATION
  Report Type: Spontaneous
  Country: US (occurrence: US)
  Receive Date: 20150701
  Receipt Date: 20151002
  Transmission Date: 20160304
  Serious: Yes (Other)
  Sender: FDA-Public Use
  Company Number: US-BAYER-2015-363156

PATIENT
  Age: 35 Year
  Sex: Female
  Weight: 129.25 kg

DRUGS (4)
  1. MIRENA [Suspect]
     Active Substance: LEVONORGESTREL
     Indication: METRORRHAGIA
     Dosage: 20 MCG/24HR, CONT
     Route: 015
     Dates: start: 20130723, end: 20150707
  2. MIRENA [Suspect]
     Active Substance: LEVONORGESTREL
     Indication: METRORRHAGIA
     Dosage: 20 MCG/24HR, CONT
     Route: 015
  3. MIRENA [Suspect]
     Active Substance: LEVONORGESTREL
     Indication: METRORRHAGIA
     Dosage: 20 MCG/24HR, CONT
     Route: 015
  4. MIRENA [Suspect]
     Active Substance: LEVONORGESTREL
     Indication: METRORRHAGIA
     Dosage: 20 MCG/24HR, CONT
     Route: 015

REACTIONS (10)
  - Device expulsion [Recovered/Resolved]
  - Device breakage [Recovered/Resolved]
  - Device dislocation [Recovered/Resolved]
  - Uterine polyp [Recovered/Resolved]
  - Embedded device [None]
  - Device dislocation [Recovered/Resolved]
  - Pain [Recovered/Resolved]
  - Abdominal pain lower [Recovered/Resolved]
  - Pain [None]
  - Pelvic pain [Recovered/Resolved]

NARRATIVE: CASE EVENT DATE: 201505
